FAERS Safety Report 19828308 (Version 3)
Quarter: 2023Q1

REPORT INFORMATION
  Report Type: Spontaneous
  Country: US (occurrence: US)
  Receive Date: 20210914
  Receipt Date: 20230206
  Transmission Date: 20230418
  Serious: No
  Sender: FDA-Public Use
  Company Number: US-PFIZER INC-2021725629

PATIENT
  Age: 80 Year
  Sex: Female

DRUGS (1)
  1. IBRANCE [Suspect]
     Active Substance: PALBOCICLIB
     Dosage: 75 MG, CYCLIC (TAKE ONE TABLET EVERY OTHER DAY, DAYS 1-21 WITH 7 DAYS OFF)
     Dates: start: 20210128

REACTIONS (2)
  - Memory impairment [Unknown]
  - Off label use [Unknown]
